FAERS Safety Report 23668203 (Version 1)
Quarter: 2024Q1

REPORT INFORMATION
  Report Type: Spontaneous
  Country: DE (occurrence: DE)
  Receive Date: 20240325
  Receipt Date: 20240325
  Transmission Date: 20240409
  Serious: Yes (Other)
  Sender: FDA-Public Use
  Company Number: DE-AMGEN-DEUSP2024058540

PATIENT
  Sex: Male

DRUGS (1)
  1. REPATHA [Suspect]
     Active Substance: EVOLOCUMAB
     Indication: Product used for unknown indication
     Dosage: 1 DOSAGE FORM, Q2WK (ONE INJECTION EVERY 14 DAYS)
     Route: 065

REACTIONS (3)
  - Meniscus operation [Unknown]
  - Oedema [Unknown]
  - Low density lipoprotein increased [Unknown]
